APPROVED DRUG PRODUCT: QUINIDINE GLUCONATE
Active Ingredient: QUINIDINE GLUCONATE
Strength: 324MG
Dosage Form/Route: TABLET, EXTENDED RELEASE;ORAL
Application: A087785 | Product #001
Applicant: WATSON LABORATORIES INC
Approved: Jan 24, 1983 | RLD: No | RS: No | Type: DISCN